FAERS Safety Report 13747250 (Version 1)
Quarter: 2017Q3

REPORT INFORMATION
  Report Type: Spontaneous
  Country: US (occurrence: US)
  Receive Date: 20170712
  Receipt Date: 20170712
  Transmission Date: 20171127
  Serious: Yes (Other)
  Sender: FDA-Public Use
  Company Number: US-SA-2016SA183629

PATIENT
  Age: 56 Year
  Sex: Male
  Weight: 108 kg

DRUGS (34)
  1. NEULASTA [Concomitant]
     Active Substance: PEGFILGRASTIM
     Route: 065
  2. VENTOLIN HFA [Concomitant]
     Active Substance: ALBUTEROL SULFATE
     Indication: WHEEZING
     Dosage: FREQUENCY EVERY 6 (SIX) HOURS AS NEEDED DOSE:2 PUFF(S)
     Route: 055
  3. LIPITOR [Concomitant]
     Active Substance: ATORVASTATIN CALCIUM
     Route: 048
  4. CYANOCOBALAMIN. [Concomitant]
     Active Substance: CYANOCOBALAMIN
     Route: 048
  5. PRINIVIL [Concomitant]
     Active Substance: LISINOPRIL
     Route: 048
  6. DEPO-PROVERA [Concomitant]
     Active Substance: MEDROXYPROGESTERONE ACETATE
     Dosage: FREQUENCY EVERY 3 (THREE) MONTHS
     Route: 030
  7. ROBAXIN [Concomitant]
     Active Substance: METHOCARBAMOL
     Route: 048
  8. VITAMINS NOS [Concomitant]
     Active Substance: VITAMINS
     Route: 048
  9. PROCTOFOAM HC [Concomitant]
     Active Substance: HYDROCORTISONE ACETATE\PRAMOXINE HYDROCHLORIDE
     Route: 054
  10. CALCIUM [Concomitant]
     Active Substance: CALCIUM
     Route: 065
  11. ADVIL [Concomitant]
     Active Substance: IBUPROFEN
     Indication: PAIN
     Dosage: FREQUENCY EVERY 8 (EIGHT) HOURS AS NEEDED
     Route: 048
  12. MOTRIN [Concomitant]
     Active Substance: IBUPROFEN
     Indication: PAIN
     Dosage: FREQUENCY EVERY 8 (EIGHT) HOURS AS NEEDED
     Route: 048
  13. MSIR [Concomitant]
     Active Substance: MORPHINE SULFATE
     Dosage: FREQUENCY EVERY 4 (FOUR) HOURS
     Route: 048
  14. COMPAZINE [Concomitant]
     Active Substance: PROCHLORPERAZINE MALEATE
     Dosage: FREQUENCY EVERY 6 (SIX) HOURS AS NEEDED
     Route: 048
  15. SEROQUEL [Concomitant]
     Active Substance: QUETIAPINE FUMARATE
     Route: 065
  16. VITAMIN D2 [Concomitant]
     Active Substance: ERGOCALCIFEROL
     Dosage: FREQUENCY EVERY 30 DAYS DOSE:50000 UNIT(S)
     Route: 048
  17. JEVTANA [Suspect]
     Active Substance: CABAZITAXEL
     Indication: PROSTATE CANCER
     Route: 042
     Dates: start: 20160923, end: 20160923
  18. PROVENTIL HFA [Concomitant]
     Active Substance: ALBUTEROL SULFATE
     Indication: WHEEZING
     Dosage: FREQUENCY EVERY 6 (SIX) HOURS AS NEEDED DOSE:2 PUFF(S)
     Route: 055
  19. CALCIUM CARBONATE. [Concomitant]
     Active Substance: CALCIUM CARBONATE
     Route: 048
  20. IMODIUM A-D [Concomitant]
     Active Substance: LOPERAMIDE HYDROCHLORIDE
     Indication: DIARRHOEA
     Dosage: DOSE ( 2-4MG) TOTAL
     Route: 048
  21. XANAX [Concomitant]
     Active Substance: ALPRAZOLAM
     Indication: SLEEP DISORDER
     Dosage: FREQUENCY ( 0.5 MG TOTAL) BY MOUTH NIGHTLY AS NEEDED
     Route: 048
  22. PRILOSEC [Concomitant]
     Active Substance: OMEPRAZOLE MAGNESIUM
     Route: 048
  23. JEVTANA [Suspect]
     Active Substance: CABAZITAXEL
     Indication: PROSTATE CANCER
     Route: 042
     Dates: start: 20160804, end: 20160804
  24. LUPRON [Concomitant]
     Active Substance: LEUPROLIDE ACETATE
     Dosage: FREQUENCY EVERY FOUR MONTHS
     Route: 030
  25. CLARITIN [Concomitant]
     Active Substance: LORATADINE
     Route: 048
  26. TAXOTERE [Concomitant]
     Active Substance: DOCETAXEL
     Indication: PROSTATE CANCER
     Route: 065
  27. DECADRON [Concomitant]
     Active Substance: DEXAMETHASONE
     Route: 048
  28. ABIRATERONE [Concomitant]
     Active Substance: ABIRATERONE
     Route: 065
  29. FOLVITE [Concomitant]
     Active Substance: FOLIC ACID
     Route: 048
  30. NORCO [Concomitant]
     Active Substance: ACETAMINOPHEN\HYDROCODONE BITARTRATE
     Indication: PAIN
     Dosage: FREQUENCY EVERY 4 (FOUR) HOURS AS NEEDED
     Route: 048
  31. ZESTRIL [Concomitant]
     Active Substance: LISINOPRIL
     Route: 048
  32. REVATIO [Concomitant]
     Active Substance: SILDENAFIL CITRATE
     Indication: ERECTILE DYSFUNCTION
     Route: 048
  33. ZOFRAN [Concomitant]
     Active Substance: ONDANSETRON HYDROCHLORIDE
     Dosage: FREQUENCY EVERY 8 (EIGHT) HOURS
     Route: 048
  34. DELTASONE [Concomitant]
     Active Substance: PREDNISONE
     Route: 048

REACTIONS (3)
  - Anaemia [Not Recovered/Not Resolved]
  - Thrombocytopenia [Not Recovered/Not Resolved]
  - Pancytopenia [Not Recovered/Not Resolved]

NARRATIVE: CASE EVENT DATE: 20160812
